FAERS Safety Report 8092781-3 (Version None)
Quarter: 2012Q1

REPORT INFORMATION
  Report Type: 
  Country: None (occurrence: None)
  Receive Date: 20120125
  Receipt Date: 20120113
  Transmission Date: 20120608
  Serious: Yes (Hospitalization)
  Sender: FDA-Public Use
  Company Number: DKLU1076098

PATIENT
  Age: 2 Year
  Sex: Female

DRUGS (1)
  1. SABRIL [Suspect]
     Indication: INFANTILE SPASMS
     Dosage: 10 ML MILLILITRE(S), 2 IN 1 D, ORAL
     Route: 048
     Dates: start: 20111201

REACTIONS (2)
  - PNEUMONIA ASPIRATION [None]
  - CONVULSION [None]
